FAERS Safety Report 7012767-7 (Version None)
Quarter: 2010Q3

REPORT INFORMATION
  Report Type: 
  Country: None (occurrence: None)
  Receive Date: 20100924
  Receipt Date: 20100921
  Transmission Date: 20110219
  Serious: Yes (Death, Hospitalization)
  Sender: FDA-Public Use
  Company Number: A0882345A

PATIENT
  Age: 62 Year
  Sex: Male

DRUGS (14)
  1. ADVAIR DISKUS 100/50 [Suspect]
     Indication: CHRONIC OBSTRUCTIVE PULMONARY DISEASE
     Dosage: 2PUFF TWICE PER DAY
     Route: 055
     Dates: start: 20060901, end: 20100920
  2. COREG [Suspect]
     Dosage: 6.25MG TWICE PER DAY
     Route: 048
     Dates: start: 20040901
  3. LEVOTHYROXINE SODIUM [Concomitant]
  4. BUMETANIDE [Concomitant]
  5. WARFARIN [Concomitant]
  6. EPLERENONE [Concomitant]
  7. AMIODARONE HCL [Concomitant]
  8. PRAVASTATIN [Concomitant]
  9. PROSCAR [Concomitant]
  10. VITAMIN D [Concomitant]
  11. TEMAZEPAM [Concomitant]
  12. UNSPECIFIED MEDICATION [Concomitant]
  13. DIGOXIN [Concomitant]
  14. ASPIRIN [Concomitant]

REACTIONS (3)
  - CARDIAC FAILURE CONGESTIVE [None]
  - DEATH [None]
  - OVERDOSE [None]
